FAERS Safety Report 10745337 (Version 2)
Quarter: 2015Q2

REPORT INFORMATION
  Report Type: Spontaneous
  Country: CH (occurrence: CH)
  Receive Date: 20150128
  Receipt Date: 20150518
  Transmission Date: 20150821
  Serious: Yes (Hospitalization, Other)
  Sender: FDA-Public Use
  Company Number: CH-PFIZER INC-2013361979

PATIENT
  Age: 48 Year
  Sex: Female

DRUGS (5)
  1. EVIPLERA [Concomitant]
     Active Substance: EMTRICITABINE\RILPIVIRINE\TENOFOVIR DISOPROXIL FUMARATE
     Indication: ANTIRETROVIRAL THERAPY
     Dosage: 200 MG, 1X/DAY
     Route: 048
     Dates: end: 20131001
  2. LEUCOVORIN [Concomitant]
     Active Substance: LEUCOVORIN
     Dosage: 15 MG, 1X/DAY
     Route: 048
     Dates: start: 20131003
  3. SULFADIAZINE. [Suspect]
     Active Substance: SULFADIAZINE
     Indication: CEREBRAL TOXOPLASMOSIS
     Dosage: 1500 MG, 4X/DAY
     Route: 048
     Dates: start: 20131016
  4. SALAZOPYRIN [Suspect]
     Active Substance: SULFASALAZINE
     Indication: CEREBRAL TOXOPLASMOSIS
     Dosage: 1500 MG, 4X/DAY
     Route: 048
     Dates: start: 20131003, end: 20131016
  5. DARAPRIM [Concomitant]
     Active Substance: PYRIMETHAMINE
     Dosage: 50 MG, 1X/DAY
     Route: 048
     Dates: start: 20131003

REACTIONS (5)
  - Product name confusion [Recovered/Resolved]
  - Drug administration error [Recovered/Resolved]
  - Faecaloma [Recovered/Resolved]
  - Nausea [Recovered/Resolved]
  - Vomiting [Recovered/Resolved]

NARRATIVE: CASE EVENT DATE: 201310
